FAERS Safety Report 5748078-7 (Version None)
Quarter: 2008Q2

REPORT INFORMATION
  Report Type: 
  Country: None (occurrence: None)
  Receive Date: 20080523
  Receipt Date: 20080512
  Transmission Date: 20081010
  Serious: Yes (Other)
  Sender: FDA-Public Use
  Company Number: BR-ROCHE-564546

PATIENT
  Age: 20 Year
  Sex: Female
  Weight: 47 kg

DRUGS (3)
  1. ROACUTAN [Suspect]
     Indication: ACNE
     Route: 048
     Dates: start: 20080425, end: 20080507
  2. ANTIBIOTIC NOS [Concomitant]
     Indication: ACNE
     Dosage: DRUG REPORTED: UNSPECIFIED ANTIBIOTIC
  3. CORTICOSTEROID NOS [Concomitant]
     Indication: ACNE
     Dosage: DRUG REPORTED: UNSPECIFIED CORTICOID
     Route: 048

REACTIONS (5)
  - ACNE FULMINANS [None]
  - ARTHRALGIA [None]
  - SKIN DISCOLOURATION [None]
  - SYNOVIAL CYST [None]
  - WHITE BLOOD CELL COUNT INCREASED [None]
